FAERS Safety Report 5315266-3 (Version None)
Quarter: 2007Q2

REPORT INFORMATION
  Report Type: 
  Country: None (occurrence: None)
  Receive Date: 20070502
  Receipt Date: 20070420
  Transmission Date: 20071010
  Serious: Yes (Death, Hospitalization, Other)
  Sender: FDA-Public Use
  Company Number: US-PFIZER INC-2007032292

PATIENT
  Sex: Female

DRUGS (4)
  1. LIPITOR [Suspect]
     Indication: BLOOD CHOLESTEROL INCREASED
  2. DIGOXIN [Concomitant]
  3. ALLOPURINOL [Concomitant]
  4. ACCUPRIL [Concomitant]

REACTIONS (2)
  - RHABDOMYOLYSIS [None]
  - TIBIA FRACTURE [None]
